FAERS Safety Report 5278768-4 (Version None)
Quarter: 2007Q1

REPORT INFORMATION
  Report Type: 
  Country: None (occurrence: None)
  Receive Date: 20061208
  Receipt Date: 20060607
  Transmission Date: 20070707
  Serious: Yes (Other)
  Sender: FDA-Public Use
  Company Number: USA-2002-0000699

PATIENT
  Age: 43 Year
  Sex: Male

DRUGS (14)
  1. OXYCONTIN [Suspect]
     Indication: PAIN
     Dosage: ORAL
     Route: 048
     Dates: start: 19950101, end: 20000101
  2. XANAX [Concomitant]
  3. DAYPRO [Concomitant]
  4. SOMA [Concomitant]
  5. IBUPROFEN [Concomitant]
  6. AUGMENTIN '125' [Concomitant]
  7. TUSSIONEX [Concomitant]
  8. SERZONE [Concomitant]
  9. AMOXIL [Concomitant]
  10. TRAZODONE HCL [Concomitant]
  11. COLCHICINE [Concomitant]
  12. NEOSPORIN [Concomitant]
  13. LORTAB [Concomitant]
  14. LOTREL [Concomitant]

REACTIONS (49)
  - ANXIETY [None]
  - ARTHRALGIA [None]
  - ARTHROPOD BITE [None]
  - BACK PAIN [None]
  - BRONCHITIS [None]
  - BRONCHITIS CHRONIC [None]
  - CELLULITIS [None]
  - COUGH [None]
  - DENTAL DISCOMFORT [None]
  - DEPRESSION [None]
  - DRUG ABUSER [None]
  - DRUG DEPENDENCE [None]
  - DRUG INEFFECTIVE [None]
  - DRUG WITHDRAWAL SYNDROME [None]
  - DYSARTHRIA [None]
  - ERYTHEMA [None]
  - FEELING DRUNK [None]
  - GAIT DISTURBANCE [None]
  - GOUT [None]
  - HEADACHE [None]
  - HYPOAESTHESIA [None]
  - INSOMNIA [None]
  - INTENTIONAL DRUG MISUSE [None]
  - MUSCLE SPASMS [None]
  - MUSCLE STRAIN [None]
  - MUSCULOSKELETAL DISORDER [None]
  - MUSCULOSKELETAL PAIN [None]
  - NAIL INFECTION [None]
  - NAIL OPERATION [None]
  - NAIL TINEA [None]
  - NASAL OEDEMA [None]
  - NERVOUSNESS [None]
  - OEDEMA PERIPHERAL [None]
  - PAIN IN EXTREMITY [None]
  - PANIC DISORDER [None]
  - PHARYNGITIS [None]
  - POSTNASAL DRIP [None]
  - PRURITUS [None]
  - RHINITIS [None]
  - RHONCHI [None]
  - SINUSITIS [None]
  - SKIN LACERATION [None]
  - SOMNOLENCE [None]
  - THERMAL BURN [None]
  - TOOTH EXTRACTION [None]
  - TOOTH INFECTION [None]
  - TOOTHACHE [None]
  - VIRAL PHARYNGITIS [None]
  - WEIGHT DECREASED [None]
